FAERS Safety Report 26208914 (Version 1)
Quarter: 2025Q4

REPORT INFORMATION
  Report Type: Spontaneous
  Country: US (occurrence: None)
  Receive Date: 20251229
  Receipt Date: 20251229
  Transmission Date: 20260117
  Serious: No
  Sender: FDA-CTU
  Company Number: None

PATIENT

DRUGS (1)
  1. MACITENTAN\TADALAFIL [Suspect]
     Active Substance: MACITENTAN\TADALAFIL

REACTIONS (6)
  - Viral infection [None]
  - Productive cough [None]
  - Dyspnoea [None]
  - Increased upper airway secretion [None]
  - Eye swelling [None]
  - Toothache [None]
